FAERS Safety Report 11157465 (Version 8)
Quarter: 2015Q3

REPORT INFORMATION
  Report Type: Report from Study
  Country: US (occurrence: US)
  Receive Date: 20150603
  Receipt Date: 20150803
  Transmission Date: 20151125
  Serious: Yes (Hospitalization)
  Sender: FDA-Public Use
  Company Number: US-ROCHE-1585605

PATIENT
  Age: 63 Year
  Sex: Male
  Weight: 82.1 kg

DRUGS (14)
  1. CRESTOR [Concomitant]
     Active Substance: ROSUVASTATIN CALCIUM
     Route: 065
     Dates: start: 20150129
  2. TRIAMCINOLONE [Concomitant]
     Active Substance: TRIAMCINOLONE
     Route: 065
     Dates: start: 20150408
  3. ASPIRIN. [Concomitant]
     Active Substance: ASPIRIN
     Route: 065
     Dates: start: 20150129
  4. BENICAR [Concomitant]
     Active Substance: OLMESARTAN MEDOXOMIL
     Route: 065
     Dates: start: 20150204
  5. PRILOSEC [Concomitant]
     Active Substance: OMEPRAZOLE MAGNESIUM
     Route: 065
     Dates: start: 20150416
  6. GABAPENTIN. [Concomitant]
     Active Substance: GABAPENTIN
     Route: 065
     Dates: start: 20150429
  7. VEMURAFENIB [Suspect]
     Active Substance: VEMURAFENIB
     Indication: NON-SMALL CELL LUNG CANCER
     Route: 048
     Dates: start: 20150325, end: 20150422
  8. VEMURAFENIB [Suspect]
     Active Substance: VEMURAFENIB
     Route: 048
     Dates: start: 20150527
  9. BACTROBAN [Concomitant]
     Active Substance: MUPIROCIN\MUPIROCIN CALCIUM
     Dosage: 1 APP
     Route: 065
     Dates: start: 20150422
  10. CARAFATE [Concomitant]
     Active Substance: SUCRALFATE
     Route: 065
     Dates: start: 20150518
  11. FAMOTIDINE. [Concomitant]
     Active Substance: FAMOTIDINE
     Route: 065
     Dates: start: 20150416
  12. VEMURAFENIB [Suspect]
     Active Substance: VEMURAFENIB
     Dosage: LAST DOSE PRIOR TO SAE 19/MAY/2015
     Route: 048
     Dates: start: 20150429, end: 20150519
  13. LIDOCAINE VISCOUS [Concomitant]
     Active Substance: LIDOCAINE HYDROCHLORIDE
     Route: 065
     Dates: start: 20150416
  14. PLAVIX [Concomitant]
     Active Substance: CLOPIDOGREL BISULFATE
     Route: 065
     Dates: start: 20150213

REACTIONS (1)
  - Pneumonia [Recovered/Resolved]

NARRATIVE: CASE EVENT DATE: 20150520
